FAERS Safety Report 20983317 (Version 1)
Quarter: 2022Q2

REPORT INFORMATION
  Report Type: Spontaneous
  Country: US (occurrence: US)
  Receive Date: 20220620
  Receipt Date: 20220620
  Transmission Date: 20220721
  Serious: No
  Sender: FDA-Public Use
  Company Number: US-PROGENICS PHARMACEUTICALS, INC.-LMI-2022-00479

PATIENT

DRUGS (1)
  1. PYLARIFY [Suspect]
     Active Substance: PIFLUFOLASTAT F-18
     Indication: Product used for unknown indication
     Dosage: 6.82 MILLICURIE
     Dates: start: 20220413, end: 20220413

REACTIONS (2)
  - Product dispensing error [Unknown]
  - Underdose [Unknown]

NARRATIVE: CASE EVENT DATE: 20220413
